FAERS Safety Report 9780384 (Version 2)
Quarter: 2014Q1

REPORT INFORMATION
  Report Type: Spontaneous
  Country: US (occurrence: US)
  Receive Date: 20131224
  Receipt Date: 20140108
  Transmission Date: 20141002
  Serious: Yes (Death, Other)
  Sender: FDA-Public Use
  Company Number: US-BIOGENIDEC-2013BI121158

PATIENT
  Sex: Female

DRUGS (2)
  1. AVONEX [Suspect]
     Indication: MULTIPLE SCLEROSIS
     Route: 030
     Dates: start: 20011014, end: 201004
  2. BETASERON [Concomitant]

REACTIONS (4)
  - Multiple sclerosis [Unknown]
  - Depression [Fatal]
  - Back pain [Recovered/Resolved]
  - General physical health deterioration [Recovered/Resolved]
